FAERS Safety Report 5818397-4 (Version None)
Quarter: 2008Q3

REPORT INFORMATION
  Report Type: 
  Country: None (occurrence: None)
  Receive Date: 20080722
  Receipt Date: 20080711
  Transmission Date: 20090109
  Serious: Yes (Disabling)
  Sender: FDA-Public Use
  Company Number: DE-PFIZER INC-2008059097

PATIENT
  Age: 81 Year
  Sex: Male

DRUGS (1)
  1. UNACID INJECTION [Suspect]
     Indication: BRONCHIAL DISORDER
     Route: 042
     Dates: start: 20080301, end: 20080301

REACTIONS (1)
  - HEARING IMPAIRED [None]
